FAERS Safety Report 4338365-1 (Version None)
Quarter: 2004Q2

REPORT INFORMATION
  Report Type: 
  Country: None (occurrence: None)
  Receive Date: 20040414
  Receipt Date: 20040219
  Transmission Date: 20050107
  Serious: Yes (Other)
  Sender: FDA-Public Use
  Company Number: 200411346US

PATIENT
  Age: 19 Year
  Sex: Male
  Weight: 83.2 kg

DRUGS (4)
  1. LANTUS [Suspect]
     Indication: DIABETES MELLITUS INSULIN-DEPENDENT
     Dosage: DOSE: 30-35; DOSE UNIT: UNITS
     Dates: start: 20020528
  2. ANTIEPILEPTICS [Concomitant]
     Indication: CONVULSION
     Dosage: DOSE: UNK
  3. SERUMLIPIDREDUCING AGENTS [Concomitant]
     Indication: BLOOD CHOLESTEROL
     Dosage: DOSE: UNK
  4. HUMALOG [Concomitant]
     Dosage: DOSE: SLIDING SCALE

REACTIONS (4)
  - CONDITION AGGRAVATED [None]
  - CONVULSION [None]
  - DIABETES MELLITUS INADEQUATE CONTROL [None]
  - GLYCOSYLATED HAEMOGLOBIN INCREASED [None]
